FAERS Safety Report 8030319-7 (Version None)
Quarter: 2011Q4

REPORT INFORMATION
  Report Type: 
  Country: None (occurrence: None)
  Receive Date: 20111130
  Receipt Date: 20110801
  Transmission Date: 20120403
  Serious: Yes (Hospitalization)
  Sender: FDA-Public Use
  Company Number: US200801004168

PATIENT
  Age: 55 Year
  Sex: Male
  Weight: 108.8 kg

DRUGS (17)
  1. ASPIRIN [Concomitant]
  2. LANTUS [Concomitant]
  3. DIOVAN [Concomitant]
  4. LISINOPRIL [Concomitant]
  5. LOPRESSOR [Concomitant]
  6. ACTOS (PIOGLITAZONE UNKNOWN FORMULATION) [Concomitant]
  7. BYETTA [Suspect]
     Indication: TYPE 2 DIABETES MELLITUS
     Dosage: 10 UG, 2/D, SUBCUTANEOUS
     Route: 058
     Dates: start: 20070601, end: 20071008
  8. ZOLOFT [Concomitant]
  9. METOPROLOL TARTRATE [Concomitant]
  10. AMLODIPINE [Concomitant]
  11. HYDROCHLOROTHIAZIDE [Concomitant]
  12. EXENATIDE 10MCG PEN, DISPOSABLE DEVICE (EXENATIDE PEN (10MCG)) PEN,DIS [Concomitant]
  13. HYDROCHLOROTHIAZIDE [Concomitant]
  14. ANALGESICS [Concomitant]
  15. METFORMIN HCL [Concomitant]
  16. NOVOLOG [Concomitant]
  17. LIPITOR [Concomitant]

REACTIONS (3)
  - RENAL DISORDER [None]
  - PANCREATITIS ACUTE [None]
  - OFF LABEL USE [None]
